FAERS Safety Report 24340965 (Version 2)
Quarter: 2024Q4

REPORT INFORMATION
  Report Type: Spontaneous
  Country: US (occurrence: US)
  Receive Date: 20240919
  Receipt Date: 20241008
  Transmission Date: 20250115
  Serious: No
  Sender: JOHNSON AND JOHNSON
  Company Number: US-JNJFOC-20240911016

PATIENT
  Age: 78 Year
  Sex: Female

DRUGS (4)
  1. WOMENS ROGAINE [Suspect]
     Active Substance: MINOXIDIL
     Indication: Alopecia
     Dosage: 1/2 OF THE LID/CUP TWICE A DAY, SWITCHED TO EVERY 3 DAYS
     Route: 061
     Dates: start: 202404, end: 2024
  2. NEUTROGENA ULTRA SHEER [Concomitant]
     Active Substance: AVOBENZONE\HOMOSALATE\OCTISALATE\OCTOCRYLENE\OXYBENZONE
     Indication: Prophylaxis against solar radiation
     Route: 065
  3. PROLIA [Concomitant]
     Active Substance: DENOSUMAB
     Indication: Bone density abnormal
     Route: 065
  4. BIOLAGEN [Concomitant]
     Indication: Product used for unknown indication
     Route: 065

REACTIONS (4)
  - Headache [Not Recovered/Not Resolved]
  - Off label use [Unknown]
  - Dizziness [Unknown]
  - Contraindicated product administered [Unknown]

NARRATIVE: CASE EVENT DATE: 20240101
